FAERS Safety Report 5149217-1 (Version None)
Quarter: 2006Q4

REPORT INFORMATION
  Report Type: 
  Country: None (occurrence: None)
  Receive Date: 20061113
  Receipt Date: 20050617
  Transmission Date: 20070319
  Serious: No
  Sender: FDA-Public Use
  Company Number: 408115

PATIENT
  Sex: Female

DRUGS (6)
  1. CARVEDILOL [Suspect]
     Dosage: 6.25MG TWICE PER DAY
     Route: 048
     Dates: start: 20040101
  2. DIOVAN [Concomitant]
  3. XANAX [Concomitant]
  4. MULTI-VITAMIN [Concomitant]
  5. VITAMIN E [Concomitant]
  6. ASPIRIN [Concomitant]

REACTIONS (9)
  - DIZZINESS [None]
  - FATIGUE [None]
  - HEAD DISCOMFORT [None]
  - HEADACHE [None]
  - HEART RATE IRREGULAR [None]
  - NERVOUSNESS [None]
  - PERIPHERAL COLDNESS [None]
  - TONGUE ERUPTION [None]
  - VISION BLURRED [None]
